FAERS Safety Report 8240297-3 (Version None)
Quarter: 2012Q1

REPORT INFORMATION
  Report Type: 
  Country: None (occurrence: None)
  Receive Date: 20120328
  Receipt Date: 20120328
  Transmission Date: 20120608
  Serious: Yes (Other)
  Sender: FDA-Public Use
  Company Number: None

PATIENT
  Age: 26 Year
  Sex: Male
  Weight: 70.306 kg

DRUGS (2)
  1. CREST PRO-HEALTH MOUTHWASH [Suspect]
     Indication: DENTAL PLAQUE
     Dosage: ONE SIP
     Route: 048
     Dates: start: 20120319, end: 20120326
  2. CREST PRO-HEALTH MOUTHWASH [Suspect]
     Indication: GINGIVITIS
     Dosage: ONE SIP
     Route: 048
     Dates: start: 20120319, end: 20120326

REACTIONS (2)
  - DYSGEUSIA [None]
  - GLOSSODYNIA [None]
